FAERS Safety Report 4423020-X (Version None)
Quarter: 2004Q3

REPORT INFORMATION
  Report Type: 
  Country: None (occurrence: None)
  Receive Date: 20040806
  Receipt Date: 20040726
  Transmission Date: 20050211
  Serious: Yes (Disabling)
  Sender: FDA-Public Use
  Company Number: 2004051022

PATIENT
  Sex: Male

DRUGS (2)
  1. NARDIL [Suspect]
     Indication: PANIC DISORDER
  2. ALPRAZOLAM [Suspect]
     Indication: ILL-DEFINED DISORDER

REACTIONS (16)
  - ANXIETY [None]
  - BACK INJURY [None]
  - CONFUSIONAL STATE [None]
  - DELIRIUM TREMENS [None]
  - DEPRESSION [None]
  - FALL [None]
  - FATIGUE [None]
  - FEELING ABNORMAL [None]
  - HYPERSOMNIA [None]
  - IMPAIRED HEALING [None]
  - MEMORY IMPAIRMENT [None]
  - SELF-MEDICATION [None]
  - SEXUAL DYSFUNCTION [None]
  - SLEEP APNOEA SYNDROME [None]
  - SNORING [None]
  - TREATMENT NONCOMPLIANCE [None]
